FAERS Safety Report 18526579 (Version 5)
Quarter: 2021Q3

REPORT INFORMATION
  Report Type: Report from Study
  Country: JP (occurrence: JP)
  Receive Date: 20201120
  Receipt Date: 20210722
  Transmission Date: 20211014
  Serious: Yes (Hospitalization, Other)
  Sender: FDA-Public Use
  Company Number: JP-TAKEDA-2020TJP025112

PATIENT
  Age: 55 Year
  Sex: Female
  Weight: 37 kg

DRUGS (2)
  1. VEDOLIZUMAB [Suspect]
     Active Substance: VEDOLIZUMAB
     Indication: CROHN^S DISEASE
     Dosage: 300 MILLIGRAM, Q8WEEKS
     Route: 041
     Dates: start: 20190716, end: 20200925
  2. VEDOLIZUMAB [Suspect]
     Active Substance: VEDOLIZUMAB
     Indication: COLITIS ULCERATIVE

REACTIONS (3)
  - Diarrhoea [Recovered/Resolved]
  - Enthesopathy [Recovered/Resolved]
  - Erythema nodosum [Recovering/Resolving]

NARRATIVE: CASE EVENT DATE: 202009
